FAERS Safety Report 25123017 (Version 1)
Quarter: 2025Q1

REPORT INFORMATION
  Report Type: Report from Study
  Country: US (occurrence: US)
  Receive Date: 20250326
  Receipt Date: 20250326
  Transmission Date: 20250408
  Serious: Yes (Other)
  Sender: JOHNSON AND JOHNSON
  Company Number: US-JNJFOC-20250234962

PATIENT
  Age: 70 Year
  Sex: Female
  Weight: 82.55 kg

DRUGS (1)
  1. TECLISTAMAB [Suspect]
     Active Substance: TECLISTAMAB
     Indication: Plasma cell myeloma
     Dates: start: 20230508

REACTIONS (4)
  - Hypogammaglobulinaemia [Unknown]
  - Depression [Unknown]
  - Emotional distress [Unknown]
  - Back pain [Unknown]

NARRATIVE: CASE EVENT DATE: 20230518
